FAERS Safety Report 4311435-X (Version None)
Quarter: 2004Q1

REPORT INFORMATION
  Report Type: 
  Country: None (occurrence: None)
  Receive Date: 20040303
  Receipt Date: 20040303
  Transmission Date: 20041129
  Serious: Yes (Hospitalization)
  Sender: FDA-Public Use
  Company Number: None

PATIENT
  Age: 74 Year
  Sex: Female

DRUGS (7)
  1. PHENYTOIN [Suspect]
  2. URSODIOL [Concomitant]
  3. PREDNISONE [Concomitant]
  4. KCL TAB [Concomitant]
  5. MORPHINE [Concomitant]
  6. MAGNESIUM [Concomitant]
  7. PERCOCET [Concomitant]

REACTIONS (3)
  - DEHYDRATION [None]
  - JAUNDICE CHOLESTATIC [None]
  - NAUSEA [None]
